FAERS Safety Report 5401356-3 (Version None)
Quarter: 2007Q3

REPORT INFORMATION
  Report Type: 
  Country: None (occurrence: None)
  Receive Date: 20070731
  Receipt Date: 20070727
  Transmission Date: 20080115
  Serious: Yes (Hospitalization)
  Sender: FDA-Public Use
  Company Number: A0666817A

PATIENT
  Age: 65 Year
  Sex: Female
  Weight: 60 kg

DRUGS (6)
  1. SERETIDE [Suspect]
     Indication: ASTHMA
     Route: 055
     Dates: start: 20060101
  2. CAPTOPRIL [Concomitant]
     Dosage: 4TAB PER DAY
     Dates: start: 20050101
  3. FUROSEMIDE [Concomitant]
     Dates: start: 20050101
  4. SUSTRATE [Concomitant]
     Dates: start: 20050101
  5. DIGOXIN [Concomitant]
     Dosage: 1TAB ALTERNATE DAYS
     Dates: start: 20050101
  6. ALDACTONE [Concomitant]
     Dates: start: 20050101

REACTIONS (3)
  - ASTHMATIC CRISIS [None]
  - DRUG INEFFECTIVE [None]
  - PANCREATIC DISORDER [None]
